FAERS Safety Report 23455970 (Version 1)
Quarter: 2024Q1

REPORT INFORMATION
  Report Type: Spontaneous
  Country: CA (occurrence: None)
  Receive Date: 20240130
  Receipt Date: 20240130
  Transmission Date: 20240410
  Serious: Yes (Other)
  Sender: FDA-Public Use
  Company Number: CA-ROCHE-3497030

PATIENT
  Age: 74 Year
  Sex: Male

DRUGS (1)
  1. PIRFENIDONE [Suspect]
     Active Substance: PIRFENIDONE
     Indication: Pulmonary fibrosis
     Route: 048

REACTIONS (7)
  - Constipation [Unknown]
  - Cough [Unknown]
  - Fatigue [Unknown]
  - Gastrointestinal disorder [Unknown]
  - Lymphoma [Unknown]
  - Obesity [Unknown]
  - Rhinorrhoea [Unknown]
